FAERS Safety Report 7896567-1 (Version None)
Quarter: 2011Q4

REPORT INFORMATION
  Report Type: 
  Country: None (occurrence: None)
  Receive Date: 20111031
  Receipt Date: 20100818
  Transmission Date: 20120403
  Serious: Yes (Other)
  Sender: FDA-Public Use
  Company Number: 673316

PATIENT

DRUGS (1)
  1. AMIDATE [Suspect]
     Indication: PRODUCT USED FOR UNKNOWN INDICATION
     Dosage: 29 MG, INTRAVENOUS
     Route: 042

REACTIONS (1)
  - INFUSION SITE EXTRAVASATION [None]
